FAERS Safety Report 9088295 (Version 2)
Quarter: 2013Q1

REPORT INFORMATION
  Report Type: Spontaneous
  Country: US (occurrence: US)
  Receive Date: 20130201
  Receipt Date: 20130226
  Transmission Date: 20140127
  Serious: No
  Sender: FDA-Public Use
  Company Number: US-PFIZER INC-2013011542

PATIENT
  Age: 72 Year
  Sex: Male

DRUGS (2)
  1. SUTENT [Suspect]
     Indication: RENAL CANCER
     Dosage: 12.5 MG, 1X/DAY (DAILY)
  2. SUTENT [Suspect]
     Dosage: 25 MG, 1X/DAY (DAILY)

REACTIONS (2)
  - White blood cell count decreased [Unknown]
  - Malaise [Unknown]
